FAERS Safety Report 7121537-0 (Version None)
Quarter: 2010Q4

REPORT INFORMATION
  Report Type: 
  Country: None (occurrence: None)
  Receive Date: 20101124
  Receipt Date: 20101110
  Transmission Date: 20110411
  Serious: Yes (Hospitalization)
  Sender: FDA-Public Use
  Company Number: JP-SANOFI-AVENTIS-2010SA020204

PATIENT
  Age: 64 Year
  Sex: Female

DRUGS (3)
  1. OXALIPLATIN [Suspect]
     Indication: COLON CANCER METASTATIC
     Route: 042
     Dates: start: 20100318, end: 20100318
  2. AVASTIN [Suspect]
     Indication: COLON CANCER METASTATIC
     Route: 042
     Dates: start: 20100318, end: 20100318
  3. KYTRIL [Suspect]
     Indication: COLON CANCER METASTATIC
     Route: 041
     Dates: start: 20100318, end: 20100318

REACTIONS (3)
  - HYPERTENSIVE EMERGENCY [None]
  - PLEURAL EFFUSION [None]
  - WHITE BLOOD CELL COUNT [None]
